FAERS Safety Report 24009009 (Version 1)
Quarter: 2024Q2

REPORT INFORMATION
  Report Type: Spontaneous
  Country: US (occurrence: US)
  Receive Date: 20240625
  Receipt Date: 20240625
  Transmission Date: 20240716
  Serious: Yes (Other)
  Sender: FDA-Public Use
  Company Number: US-ZPPROD-ZP24US000901

PATIENT
  Sex: Female

DRUGS (4)
  1. ZEGALOGUE [Suspect]
     Active Substance: DASIGLUCAGON
     Indication: Product used for unknown indication
     Dosage: UNK
     Route: 058
  2. NOVOLOG [Suspect]
     Active Substance: INSULIN ASPART
     Indication: Diabetes mellitus
     Dosage: UNK
     Route: 058
  3. INSULIN ASPART [Suspect]
     Active Substance: INSULIN ASPART
     Indication: Diabetes mellitus
     Dosage: UNK
     Route: 058
  4. TRESIBA [Suspect]
     Active Substance: INSULIN DEGLUDEC
     Indication: Diabetes mellitus
     Dosage: 200 INTERNATIONAL UNIT
     Route: 058

REACTIONS (1)
  - Cerebrovascular accident [Recovered/Resolved with Sequelae]
